FAERS Safety Report 16689129 (Version 1)
Quarter: 2019Q3

REPORT INFORMATION
  Report Type: Report from Study
  Country: US (occurrence: US)
  Receive Date: 20190809
  Receipt Date: 20190809
  Transmission Date: 20191004
  Serious: Yes (Hospitalization, Other)
  Sender: FDA-Public Use
  Company Number: US-BRISTOL-MYERS SQUIBB COMPANY-BMS-2019-078643

PATIENT
  Sex: Female

DRUGS (2)
  1. NIVOLUMAB [Suspect]
     Active Substance: NIVOLUMAB
     Indication: ADRENAL GLAND CANCER METASTATIC
     Dosage: 240 MILLIGRAM, Q2WK
     Route: 042
  2. MITOTANE [Suspect]
     Active Substance: MITOTANE
     Indication: ADRENOCORTICAL CARCINOMA
     Dosage: UNK
     Route: 065

REACTIONS (5)
  - Transaminases increased [Recovering/Resolving]
  - Rash maculo-papular [Unknown]
  - Stomatitis [Unknown]
  - Adrenal insufficiency [Unknown]
  - Anal inflammation [Unknown]
